FAERS Safety Report 9252934 (Version 3)
Quarter: 2013Q3

REPORT INFORMATION
  Report Type: Report from Study
  Country: US (occurrence: US)
  Receive Date: 20130424
  Receipt Date: 20130702
  Transmission Date: 20140515
  Serious: Yes (Hospitalization)
  Sender: FDA-Public Use
  Company Number: US-BRISTOL-MYERS SQUIBB COMPANY-18790295

PATIENT
  Age: 62 Year
  Sex: Male
  Weight: 89 kg

DRUGS (22)
  1. IPILIMUMAB [Suspect]
     Indication: METASTATIC MALIGNANT MELANOMA
     Dosage: CYCLE2-19MAR13?CY1:26FEB13;903MG WT:90.3KG?CY2:19MAR13;890MG;WT89KG.
     Dates: start: 20130226, end: 20130415
  2. AMLODIPINE BESYLATE [Concomitant]
     Indication: BLOOD PRESSURE
     Route: 048
  3. GABAPENTIN [Concomitant]
     Indication: NEURALGIA
  4. GLIPIZIDE [Concomitant]
  5. MAGNESIUM GLUCONATE [Concomitant]
  6. METFORMIN [Concomitant]
  7. ONDANSETRON [Concomitant]
  8. ZOFRAN [Concomitant]
     Indication: NAUSEA
     Dosage: 8MG EVERY 8 HR AS NEEDED
  9. ZOFRAN [Concomitant]
     Indication: VOMITING
     Dosage: 8MG EVERY 8 HR AS NEEDED
  10. OXYCODONE [Concomitant]
     Indication: PAIN
     Dosage: AS NEEDED
  11. PEPCID [Concomitant]
     Indication: GASTROOESOPHAGEAL REFLUX DISEASE
  12. SENOKOT [Concomitant]
     Dosage: 1DF: 2 TABS, AS NECESSARY
  13. ACTIFED [Concomitant]
     Dosage: 1 TABS
  14. CYCLOPENTOLATE HYDROCHLORIDE [Concomitant]
     Dosage: 1DF: EYE DROPS 1 DROP IN EACH EYE AS THAT TIME
  15. DIFLUPREDNATE [Concomitant]
     Dosage: EYE DROP, 1 DROP IN EACH EYE 4 / 1 DAY
  16. SODIUM CHLORIDE [Concomitant]
     Route: 047
  17. OMEPRAZOLE [Concomitant]
  18. HYDROXYZINE [Concomitant]
  19. NAPROXEN [Concomitant]
  20. TRIPROLIDINE HCL + PSEUDOEPHEDRINE HCL [Concomitant]
  21. LOPERAMIDE [Concomitant]
  22. EMOLLIENT [Concomitant]

REACTIONS (9)
  - Myelitis transverse [Recovering/Resolving]
  - Iridocyclitis [Recovered/Resolved]
  - Pyrexia [Unknown]
  - Renal failure acute [Unknown]
  - Colitis [Recovered/Resolved]
  - Nephritis [Recovered/Resolved]
  - Vitritis [Unknown]
  - Pneumonitis [Unknown]
  - Dermatitis [Recovered/Resolved]
